FAERS Safety Report 19896330 (Version 1)
Quarter: 2021Q3

REPORT INFORMATION
  Report Type: Spontaneous
  Country: US (occurrence: US)
  Receive Date: 20210929
  Receipt Date: 20210929
  Transmission Date: 20211014
  Serious: No
  Sender: FDA-Public Use
  Company Number: US-PFIZER INC-202100946312

PATIENT
  Age: 32 Year
  Sex: Female
  Weight: 152.41 kg

DRUGS (1)
  1. CHANTIX [Suspect]
     Active Substance: VARENICLINE TARTRATE
     Indication: SMOKING CESSATION THERAPY
     Dosage: 0.5MG, AFTER 4 DAYS OF TAKING ONE, ON THE 6TH AND 7TH DAY OF WHITE PILLS, SHE HAD TO TAKE 2,

REACTIONS (3)
  - Eating disorder [Unknown]
  - Anger [Unknown]
  - Depression [Not Recovered/Not Resolved]
